FAERS Safety Report 18461590 (Version 1)
Quarter: 2020Q4

REPORT INFORMATION
  Report Type: Spontaneous
  Country: FR (occurrence: FR)
  Receive Date: 20201104
  Receipt Date: 20201104
  Transmission Date: 20210114
  Serious: Yes (Death, Life-Threatening, Hospitalization)
  Sender: FDA-Public Use
  Company Number: FR-ACCORD-207304

PATIENT
  Age: 52 Year
  Sex: Female
  Weight: 56 kg

DRUGS (12)
  1. INEXIUM [Concomitant]
     Active Substance: ESOMEPRAZOLE
     Dosage: 20 MG,
     Route: 048
  2. FORADIL [Concomitant]
     Active Substance: FORMOTEROL FUMARATE
     Dosage: 12 MICROGRAMS, INHALATION POWDER IN CAPSULE
     Route: 055
  3. ALDACTONE [Suspect]
     Active Substance: SPIRONOLACTONE
     Indication: PRODUCT USED FOR UNKNOWN INDICATION
     Route: 048
  4. ZYMAD [Concomitant]
     Active Substance: CHOLECALCIFEROL
     Dosage: 80,000 IU, ORAL SOLUTION IN AMPOULE
  5. ZOLOFT [Concomitant]
     Active Substance: SERTRALINE HYDROCHLORIDE
     Dosage: 50 MG
     Route: 048
  6. CRESTOR [Concomitant]
     Active Substance: ROSUVASTATIN CALCIUM
     Dosage: 5 MG
     Route: 048
  7. EUTHYROX [Concomitant]
     Active Substance: LEVOTHYROXINE SODIUM
     Dosage: 25 MICROGRAMS TABLETS
     Route: 048
  8. RAMIPRIL. [Suspect]
     Active Substance: RAMIPRIL
     Indication: CARDIAC FAILURE
     Route: 048
     Dates: start: 20200921
  9. QVAR [Concomitant]
     Active Substance: BECLOMETHASONE DIPROPIONATE
     Route: 055
  10. DIGOXIN. [Suspect]
     Active Substance: DIGOXIN
     Indication: CARDIAC FAILURE
     Dosage: STRENGTH: 0.25 MG, TABLET
     Route: 048
     Dates: end: 20201001
  11. DIFFU K [Suspect]
     Active Substance: POTASSIUM CHLORIDE
     Indication: PRODUCT USED FOR UNKNOWN INDICATION
     Dosage: 3 IN THE MORNING, 2 AT NOON, 3 IN THE EVENING
     Route: 048
     Dates: end: 20201001
  12. LASILIX [Concomitant]
     Active Substance: FUROSEMIDE
     Route: 048
     Dates: start: 20200921

REACTIONS (3)
  - Hyperkalaemia [Fatal]
  - Acute kidney injury [Fatal]
  - Toxicity to various agents [Fatal]

NARRATIVE: CASE EVENT DATE: 20201001
